FAERS Safety Report 8270158-5 (Version None)
Quarter: 2012Q2

REPORT INFORMATION
  Report Type: 
  Country: None (occurrence: None)
  Receive Date: 20120410
  Receipt Date: 20120403
  Transmission Date: 20120825
  Serious: Yes (Hospitalization)
  Sender: FDA-Public Use
  Company Number: PHHY2010JP55514

PATIENT
  Age: 51 Year
  Sex: Female
  Weight: 48 kg

DRUGS (13)
  1. VOLTAREN [Suspect]
     Dosage: 50 MG, UNK
     Dates: start: 20091215, end: 20100102
  2. BERAPROST SODIUM [Concomitant]
     Indication: SKIN ULCER
     Dosage: 120 MICROGRAM, UNK
     Route: 048
  3. ALPROSTADIL [Concomitant]
     Indication: ULCER
     Dosage: 10 MICROGRAM, UNK
     Route: 041
  4. ROPIVACAINE HYDROCHLORIDE [Concomitant]
     Indication: SKIN ULCER
     Dosage: 3 MG/H, MINIMUM INTERVAL OF ADDITIONAL ADMINISTRATION; 60 MINUTES
     Route: 042
  5. VOLTAREN [Suspect]
     Dosage: 12.5 MG, UNK
     Route: 054
     Dates: start: 20100103, end: 20100103
  6. PREDNISOLONE [Concomitant]
     Indication: SKIN ULCER
     Dosage: 20 MG, UNK
     Route: 048
  7. ARGATROBAN [Concomitant]
     Indication: SKIN ULCER
     Dosage: 10 MG, PER DAY
     Route: 041
  8. BERAPROST SODIUM [Concomitant]
     Dosage: 10 UG, PER DAY
     Route: 048
  9. PROSTAGLANDIN E1 [Concomitant]
     Indication: SKIN ULCER
     Dosage: 10 UG, DAY
     Route: 041
  10. PENTAZOCINE LACTATE [Suspect]
     Indication: PAIN IN EXTREMITY
     Dosage: 50 MG, PER DAY
     Route: 042
  11. SILDENAFIL [Concomitant]
     Dosage: 60 MG, PER DAY`
  12. VOLTAREN [Suspect]
     Indication: PAIN IN EXTREMITY
     Dosage: 25 MG, DAILY
     Route: 054
     Dates: start: 20091210, end: 20091214
  13. TRACLEER [Concomitant]
     Dosage: 125 MG, PER DAY

REACTIONS (2)
  - INSOMNIA [None]
  - LIVER DISORDER [None]
